FAERS Safety Report 8618613-X (Version None)
Quarter: 2012Q3

REPORT INFORMATION
  Report Type: 
  Country: None (occurrence: None)
  Receive Date: 20120814
  Receipt Date: 20120814
  Transmission Date: 20120928
  Serious: Yes (Other)
  Sender: FDA-Public Use
  Company Number: None

PATIENT

DRUGS (5)
  1. LEXAPRO [Suspect]
     Indication: ANXIETY
     Dosage: 10 MG, 1XDAY, PO
     Route: 048
     Dates: start: 20110605, end: 20110809
  2. LEXAPRO [Suspect]
     Indication: OBSESSIVE-COMPULSIVE DISORDER
     Dosage: 10 MG, 1XDAY, PO
     Route: 048
     Dates: start: 20110605, end: 20110809
  3. LEXAPRO [Suspect]
     Indication: DEPRESSION
     Dosage: 10 MG, 1XDAY, PO
     Route: 048
     Dates: start: 20110605, end: 20110809
  4. PRISTIQ [Concomitant]
  5. ZOLOFT [Concomitant]

REACTIONS (1)
  - DIARRHOEA [None]
